FAERS Safety Report 9377333 (Version 2)
Quarter: 2013Q3

REPORT INFORMATION
  Report Type: Report from Study
  Country: US (occurrence: US)
  Receive Date: 20130701
  Receipt Date: 20130723
  Transmission Date: 20140515
  Serious: Yes (Hospitalization, Other)
  Sender: FDA-Public Use
  Company Number: PHEH2013US013869

PATIENT
  Age: 74 Year
  Sex: Male

DRUGS (17)
  1. TOBI [Suspect]
     Indication: CHRONIC LYMPHOCYTIC LEUKAEMIA
     Dosage: 300 MG, BID (28 DAYS CYCLE AND OFF FOR 28 DAYS)
     Dates: end: 201306
  2. IMMUNOGLOBULIN I.V [Concomitant]
     Dosage: 35 G, TWO DAYS EARLY
  3. PREDNISONE [Concomitant]
     Dosage: 40 MG, A DAY
  4. PREDNISONE [Concomitant]
     Dosage: 35 MG, QD
  5. PRILOSEC [Concomitant]
     Dosage: 20 MG, TWO DAILY
  6. POTASSIUM [Concomitant]
     Dosage: LOWERED TO EVERY OTHER DAY
  7. ALDACTONE [Concomitant]
     Dosage: 25 MG, TWO DAILY
  8. FUROSEMIDE [Concomitant]
     Dosage: 40 MG, LOWERED TWO DAILY
  9. METFORMIN [Concomitant]
     Dosage: 500 MG, QD
  10. CALCIUM [Concomitant]
     Dosage: 500 MG, TWICE A DAY
     Route: 048
  11. SERTRALINE [Concomitant]
     Dosage: 200 MG, AT BEDTIME
  12. SPIRONOLACTONE [Concomitant]
     Dosage: 25 MG, UNK
  13. COLAC [Concomitant]
     Dosage: 100 MG, TWO TWICE DAY
  14. ADVAIR DISKUS [Concomitant]
     Dosage: 5500 ONE PUFF TWICE A DAY
  15. POTASSIUM CHLORIDE [Concomitant]
     Dosage: 10 MEQ, QD
  16. DUONEB [Concomitant]
     Dosage: FOUR TIMES A DAY
  17. OXYGEN [Concomitant]
     Dosage: 2 LITER CHRONICALLY

REACTIONS (20)
  - Spinal compression fracture [Recovering/Resolving]
  - Back pain [Recovering/Resolving]
  - Spinal osteoarthritis [Recovering/Resolving]
  - Bronchitis bacterial [Recovered/Resolved]
  - Diverticulitis [Recovering/Resolving]
  - Cardiac failure [Recovered/Resolved]
  - Diastolic dysfunction [Recovered/Resolved]
  - Bronchitis chronic [Unknown]
  - Chronic lymphocytic leukaemia [Unknown]
  - Osteoporosis [Unknown]
  - Hypogammaglobulinaemia [Unknown]
  - Asthma [Unknown]
  - Blood creatinine increased [Recovered/Resolved]
  - Blood urea increased [Recovering/Resolving]
  - Protein total decreased [Unknown]
  - Blood bilirubin increased [Unknown]
  - White blood cell count decreased [Recovered/Resolved]
  - Blood sodium decreased [Recovered/Resolved]
  - Red blood cell sedimentation rate increased [Unknown]
  - Pyrexia [Unknown]
